FAERS Safety Report 9953393 (Version 1)
Quarter: 2014Q1

REPORT INFORMATION
  Report Type: Report from Study
  Country: US (occurrence: US)
  Receive Date: 20140304
  Receipt Date: 20140304
  Transmission Date: 20141002
  Serious: No
  Sender: FDA-Public Use
  Company Number: US-ABBVIE-13P-163-1074729-00

PATIENT
  Age: 49 Year
  Sex: Female

DRUGS (28)
  1. HUMIRA [Suspect]
     Indication: RHEUMATOID ARTHRITIS
     Dates: start: 201004
  2. HUMIRA [Suspect]
     Dates: start: 201208
  3. PERCOCET [Concomitant]
     Indication: PAIN
     Dosage: 10/325 MG
  4. TYLENOL [Concomitant]
     Indication: PAIN
     Dosage: 4 THREE TIMES A DAY
  5. SINGULAIR [Concomitant]
     Indication: HYPERSENSITIVITY
  6. SINGULAIR [Concomitant]
     Indication: ASTHMA
  7. HCTZ [Concomitant]
     Indication: BLOOD PRESSURE
     Dosage: 1/2 TAB DAILY
  8. COREG [Concomitant]
     Indication: BLOOD PRESSURE
  9. PRILOSEC [Concomitant]
     Indication: GASTROOESOPHAGEAL REFLUX DISEASE
  10. PREDNISONE [Concomitant]
     Indication: INFLAMMATION
  11. CRESTOR [Concomitant]
     Indication: BLOOD CHOLESTEROL
  12. BUSPAR [Concomitant]
     Indication: ANXIETY
  13. CYMBALTA [Concomitant]
     Indication: PAIN
  14. ASACOL [Concomitant]
     Indication: COLITIS ULCERATIVE
  15. ALLEGRA [Concomitant]
     Indication: HYPERSENSITIVITY
  16. DESYREL [Concomitant]
     Indication: INSOMNIA
  17. VITAMIN D [Concomitant]
     Indication: PRODUCT USED FOR UNKNOWN INDICATION
  18. FOLIC ACID [Concomitant]
     Indication: CANDIDA INFECTION
     Dosage: 1-4 TABS
  19. DIFLUCAN [Concomitant]
     Indication: CANDIDA INFECTION
  20. ASPIRIN [Concomitant]
     Indication: PRODUCT USED FOR UNKNOWN INDICATION
  21. SPIRIVA [Concomitant]
     Indication: PRODUCT USED FOR UNKNOWN INDICATION
     Dosage: INHALER
  22. SYMBICORT [Concomitant]
     Indication: PRODUCT USED FOR UNKNOWN INDICATION
     Dosage: INHALER
  23. PROAIR HFA [Concomitant]
     Indication: PRODUCT USED FOR UNKNOWN INDICATION
     Dosage: INHALER
  24. FISH OIL [Concomitant]
     Indication: PRODUCT USED FOR UNKNOWN INDICATION
  25. ALIGN [Concomitant]
     Indication: PRODUCT USED FOR UNKNOWN INDICATION
     Dosage: 1 DAILY
  26. GAS-X [Concomitant]
     Indication: PRODUCT USED FOR UNKNOWN INDICATION
  27. MULTIPLE VITAMIN [Concomitant]
     Indication: PRODUCT USED FOR UNKNOWN INDICATION
     Dosage: DAILY
  28. NATURAL FIBER [Concomitant]
     Indication: COLITIS
     Dosage: 1 SCOOP

REACTIONS (1)
  - Vomiting [Recovering/Resolving]
